FAERS Safety Report 7535832-4 (Version None)
Quarter: 2011Q2

REPORT INFORMATION
  Report Type: 
  Country: None (occurrence: None)
  Receive Date: 20110607
  Receipt Date: 20110607
  Transmission Date: 20111010
  Serious: Yes (Hospitalization)
  Sender: FDA-Public Use
  Company Number: None

PATIENT
  Age: 14 Year
  Sex: 0
  Weight: 49.8957 kg

DRUGS (1)
  1. COLCRYS [Suspect]
     Indication: FAMILIAL MEDITERRANEAN FEVER
     Dosage: 2 TABLETS DAILY PO
     Route: 048
     Dates: start: 20101201, end: 20110604

REACTIONS (5)
  - BACK PAIN [None]
  - DYSSTASIA [None]
  - ABDOMINAL PAIN UPPER [None]
  - PYREXIA [None]
  - RENAL PAIN [None]
